FAERS Safety Report 5708184-X (Version None)
Quarter: 2008Q2

REPORT INFORMATION
  Report Type: 
  Country: None (occurrence: None)
  Receive Date: 20080417
  Receipt Date: 20080416
  Transmission Date: 20081010
  Serious: Yes (Other)
  Sender: FDA-Public Use
  Company Number: D0056376A

PATIENT
  Sex: Female

DRUGS (1)
  1. SULTANOL [Suspect]
     Indication: ASTHMA
     Route: 065

REACTIONS (2)
  - HALLUCINATION [None]
  - HALLUCINATION, AUDITORY [None]
